FAERS Safety Report 9454463 (Version 1)
Quarter: 2013Q3

REPORT INFORMATION
  Report Type: Spontaneous
  Country: DE (occurrence: DE)
  Receive Date: 20130812
  Receipt Date: 20130812
  Transmission Date: 20140515
  Serious: Yes (Hospitalization)
  Sender: FDA-Public Use
  Company Number: DE-TEVA-423524GER

PATIENT
  Age: 0 Day
  Sex: Female
  Weight: 2.83 kg

DRUGS (1)
  1. VENLAFAXIN [Suspect]
     Route: 064

REACTIONS (5)
  - Vital functions abnormal [Unknown]
  - Muscle spasticity [Unknown]
  - Bradycardia neonatal [Unknown]
  - Respiratory gas exchange disorder [Unknown]
  - Respiratory acidosis [Unknown]
